FAERS Safety Report 4264995-1 (Version None)
Quarter: 2004Q1

REPORT INFORMATION
  Report Type: 
  Country: None (occurrence: None)
  Receive Date: 20040106
  Receipt Date: 20031230
  Transmission Date: 20041129
  Serious: Yes (Hospitalization)
  Sender: FDA-Public Use
  Company Number: WAES 0312FRA00090

PATIENT
  Age: 80 Year
  Sex: Female

DRUGS (3)
  1. FOSAMAX [Suspect]
     Route: 048
     Dates: end: 20020227
  2. ERGOLOID MESYLATES [Suspect]
     Route: 048
     Dates: end: 20020227
  3. GABAPENTIN [Suspect]
     Indication: SCIATICA
     Route: 048
     Dates: start: 20011201, end: 20020227

REACTIONS (2)
  - PNEUMONITIS [None]
  - PULMONARY FIBROSIS [None]
